FAERS Safety Report 5343359-3 (Version None)
Quarter: 2007Q2

REPORT INFORMATION
  Report Type: 
  Country: None (occurrence: None)
  Receive Date: 20070501
  Receipt Date: 20070301
  Transmission Date: 20071010
  Serious: Yes (Other)
  Sender: FDA-Public Use
  Company Number: 200618988US

PATIENT
  Age: 22 Year
  Sex: Female

DRUGS (4)
  1. KETEK [Suspect]
     Indication: LYME DISEASE
     Dosage: 800 MG QD
     Dates: start: 20040101, end: 20040101
  2. PLAQUENIL [Suspect]
     Indication: LYME DISEASE
     Dates: start: 20040101, end: 20040101
  3. PROVIGIL [Concomitant]
  4. ETHINYLESTRADIOL, DROSPIRENONE (YASMIN) [Concomitant]

REACTIONS (5)
  - DIZZINESS [None]
  - HALO VISION [None]
  - HEADACHE [None]
  - IMPAIRED DRIVING ABILITY [None]
  - VISION BLURRED [None]
